FAERS Safety Report 6503549-0 (Version None)
Quarter: 2009Q4

REPORT INFORMATION
  Report Type: 
  Country: None (occurrence: None)
  Receive Date: 20091201
  Receipt Date: 20090827
  Transmission Date: 20100525
  Serious: Yes (Hospitalization)
  Sender: FDA-Public Use
  Company Number: 2009SP023413

PATIENT
  Age: 38 Year
  Sex: Female
  Weight: 73.9363 kg

DRUGS (1)
  1. NUVARING [Suspect]
     Indication: PREGNANCY ON CONTRACEPTIVE
     Dates: start: 20070601, end: 20071012

REACTIONS (1)
  - PULMONARY EMBOLISM [None]
